FAERS Safety Report 22596741 (Version 1)
Quarter: 2023Q2

REPORT INFORMATION
  Report Type: Spontaneous
  Country: None (occurrence: US)
  Receive Date: 20230613
  Receipt Date: 20230613
  Transmission Date: 20230721
  Serious: Yes (Other)
  Sender: FDA-Public Use
  Company Number: US-Medline Industries, LP-2142664

PATIENT
  Age: 47 Year
  Sex: Female
  Weight: 50 kg

DRUGS (1)
  1. PROVIDONE-IODINE PREP PADS [Suspect]
     Active Substance: POVIDONE-IODINE
     Route: 061
     Dates: start: 20230126

REACTIONS (1)
  - Burns third degree [Recovering/Resolving]
